FAERS Safety Report 9165707 (Version 2)
Quarter: 2013Q2

REPORT INFORMATION
  Report Type: Spontaneous
  Country: DE (occurrence: DE)
  Receive Date: 20130315
  Receipt Date: 20130425
  Transmission Date: 20140414
  Serious: Yes (Other)
  Sender: FDA-Public Use
  Company Number: DE-BAXTER-2013BAX008508

PATIENT
  Age: 35 Year
  Sex: Female

DRUGS (2)
  1. ENDOXAN 1G [Suspect]
     Indication: PRODUCT USED FOR UNKNOWN INDICATION
     Route: 065
     Dates: start: 20130227
  2. EPIRUBICIN [Suspect]
     Indication: PRODUCT USED FOR UNKNOWN INDICATION
     Route: 065

REACTIONS (5)
  - Exposure during pregnancy [Unknown]
  - Premature labour [Unknown]
  - Premature delivery [Unknown]
  - General physical health deterioration [Unknown]
  - Asthenia [Unknown]
